FAERS Safety Report 8232431-6 (Version None)
Quarter: 2012Q1

REPORT INFORMATION
  Report Type: 
  Country: None (occurrence: None)
  Receive Date: 20120320
  Receipt Date: 20120313
  Transmission Date: 20120608
  Serious: Yes (Death)
  Sender: FDA-Public Use
  Company Number: DSA_55692_2012

PATIENT
  Sex: Male

DRUGS (1)
  1. XENAZINE [Suspect]
     Indication: PRODUCT USED FOR UNKNOWN INDICATION
     Dosage: 12.5 MG BID ORAL
     Route: 048
     Dates: start: 20110728, end: 20120311

REACTIONS (1)
  - DEATH [None]
